FAERS Safety Report 14532502 (Version 2)
Quarter: 2018Q2

REPORT INFORMATION
  Report Type: Report from Study
  Country: US (occurrence: US)
  Receive Date: 20180214
  Receipt Date: 20180507
  Transmission Date: 20180711
  Serious: Yes (Other)
  Sender: FDA-Public Use
  Company Number: US-ALLERGAN-1807092US

PATIENT
  Age: 48 Year
  Sex: Female

DRUGS (4)
  1. DEMEROL [Concomitant]
     Active Substance: MEPERIDINE HYDROCHLORIDE
  2. BOTULINUM TOXIN TYPE A - GENERAL (9060X) [Suspect]
     Active Substance: BOTULINUM TOXIN TYPE A
     Indication: MIGRAINE
     Dosage: UNK, SINGLE
     Route: 030
     Dates: start: 201707, end: 201707
  3. BOTULINUM TOXIN TYPE A - GENERAL (9060X) [Suspect]
     Active Substance: BOTULINUM TOXIN TYPE A
     Dosage: UNK, SINGLE
     Route: 030
     Dates: start: 2013, end: 2013
  4. OXYCODONE [Concomitant]
     Active Substance: OXYCODONE

REACTIONS (5)
  - Seizure [Not Recovered/Not Resolved]
  - Sciatic nerve injury [Unknown]
  - Spinal column injury [Unknown]
  - Neurostimulator implantation [Recovered/Resolved]
  - Ovarian disorder [Not Recovered/Not Resolved]

NARRATIVE: CASE EVENT DATE: 201703
